FAERS Safety Report 6445145-X (Version None)
Quarter: 2009Q4

REPORT INFORMATION
  Report Type: 
  Country: None (occurrence: None)
  Receive Date: 20091110
  Receipt Date: 20090825
  Transmission Date: 20100525
  Serious: No
  Sender: FDA-Public Use
  Company Number: 1000008435

PATIENT
  Sex: Female

DRUGS (1)
  1. SAVELLA [Suspect]
     Dates: start: 20090811

REACTIONS (4)
  - HEADACHE [None]
  - IRRITABILITY [None]
  - NAUSEA [None]
  - NERVOUSNESS [None]
